FAERS Safety Report 11930706 (Version 1)
Quarter: 2016Q1

REPORT INFORMATION
  Report Type: Spontaneous
  Country: ES (occurrence: ES)
  Receive Date: 20160120
  Receipt Date: 20160120
  Transmission Date: 20160526
  Serious: Yes (Hospitalization, Other)
  Sender: FDA-Public Use
  Company Number: ES-PFIZER INC-2016022828

PATIENT
  Age: 57 Year
  Sex: Male

DRUGS (3)
  1. SUTENT [Suspect]
     Active Substance: SUNITINIB MALATE
     Indication: PANCREATIC NEUROENDOCRINE TUMOUR METASTATIC
     Dosage: 37.5 MG, 1X/DAY
     Dates: start: 201504
  2. SUTENT [Suspect]
     Active Substance: SUNITINIB MALATE
     Dosage: 25 UNK, UNK
     Dates: start: 201510
  3. SUTENT [Suspect]
     Active Substance: SUNITINIB MALATE
     Dosage: 25 MG, UNK
     Dates: start: 201506

REACTIONS (5)
  - Neutropenia [Unknown]
  - Disease progression [Unknown]
  - Pancreatic neuroendocrine tumour metastatic [Unknown]
  - Blood glucose abnormal [Unknown]
  - Cholangitis [Recovered/Resolved]

NARRATIVE: CASE EVENT DATE: 2015
